FAERS Safety Report 4764568-8 (Version None)
Quarter: 2005Q3

REPORT INFORMATION
  Report Type: 
  Country: None (occurrence: None)
  Receive Date: 20050906
  Receipt Date: 20050822
  Transmission Date: 20060218
  Serious: Yes (Hospitalization)
  Sender: FDA-Public Use
  Company Number: T05-USA-03086-01

PATIENT
  Age: 40 Year
  Sex: Female
  Weight: 60 kg

DRUGS (6)
  1. ESCITALOPRAM OXALATE [Suspect]
     Indication: MAJOR DEPRESSION
     Dosage: 10 MG QD
     Dates: start: 20040223, end: 20040809
  2. CLARITIN [Concomitant]
  3. ZOLOFT [Concomitant]
  4. PRENATAL VITAMINS [Concomitant]
  5. RHOGAM (IMMUNOGLOBULIN HUMAN ANTI-RH) [Concomitant]
  6. ALBUTEROL [Concomitant]

REACTIONS (19)
  - ANHEDONIA [None]
  - ANTIBODY TEST POSITIVE [None]
  - CAESAREAN SECTION [None]
  - DEPRESSED MOOD [None]
  - DRUG EXPOSURE DURING PREGNANCY [None]
  - FEELING GUILTY [None]
  - GESTATIONAL DIABETES [None]
  - INITIAL INSOMNIA [None]
  - LIBIDO DECREASED [None]
  - METRORRHAGIA [None]
  - MITRAL VALVE PROLAPSE [None]
  - PNEUMONIA [None]
  - PRE-ECLAMPSIA [None]
  - PREGNANCY [None]
  - PREMATURE BABY [None]
  - STRESS [None]
  - TACHYCARDIA [None]
  - UPPER RESPIRATORY TRACT INFECTION [None]
  - URINARY TRACT INFECTION [None]
